FAERS Safety Report 21895863 (Version 3)
Quarter: 2023Q2

REPORT INFORMATION
  Report Type: Other
  Country: IN (occurrence: None)
  Receive Date: 20230123
  Receipt Date: 20230527
  Transmission Date: 20230721
  Serious: Yes (Other)
  Sender: FDA-Public Use
  Company Number: IN-ROCHE-3246558

PATIENT
  Sex: Male

DRUGS (1)
  1. TECENTRIQ [Suspect]
     Active Substance: ATEZOLIZUMAB
     Indication: Hepatocellular carcinoma
     Dosage: MOST RECENT DOSE: 16/MAR/2023?INTERVAL: 29 DAYS
     Route: 042
     Dates: start: 20221130

REACTIONS (4)
  - Off label use [Unknown]
  - Sepsis [Unknown]
  - Electrolyte imbalance [Unknown]
  - Off label use [Unknown]
